FAERS Safety Report 21296285 (Version 1)
Quarter: 2022Q3

REPORT INFORMATION
  Report Type: Other
  Country: IN (occurrence: None)
  Receive Date: 20220906
  Receipt Date: 20220906
  Transmission Date: 20221026
  Serious: Yes (Death, Hospitalization)
  Sender: FDA-Public Use
  Company Number: IN-MLMSERVICE-20220825-3756195-2

PATIENT
  Age: 28 Year
  Sex: Male

DRUGS (5)
  1. MYCOPHENOLATE MOFETIL [Suspect]
     Active Substance: MYCOPHENOLATE MOFETIL
     Indication: Prophylaxis against transplant rejection
     Route: 065
  2. PREDNISOLONE [Suspect]
     Active Substance: PREDNISOLONE
     Indication: Prophylaxis against transplant rejection
     Route: 065
  3. TACROLIMUS [Suspect]
     Active Substance: TACROLIMUS
     Indication: Prophylaxis against transplant rejection
     Route: 065
  4. DEXAMETHASONE [Concomitant]
     Active Substance: DEXAMETHASONE
     Route: 042
  5. CYCLOSPORINE [Concomitant]
     Active Substance: CYCLOSPORINE
     Route: 042

REACTIONS (8)
  - COVID-19 pneumonia [Fatal]
  - Acute respiratory distress syndrome [Fatal]
  - Hypotension [Fatal]
  - Mesenteric vein thrombosis [Fatal]
  - Splenic vein thrombosis [Fatal]
  - Pancreatitis necrotising [Fatal]
  - Septic shock [Fatal]
  - Multiple organ dysfunction syndrome [Fatal]
